FAERS Safety Report 25330695 (Version 1)
Quarter: 2025Q2

REPORT INFORMATION
  Report Type: Spontaneous
  Country: US (occurrence: None)
  Receive Date: 20250516
  Receipt Date: 20250516
  Transmission Date: 20250717
  Serious: Yes (Disabling)
  Sender: FDA-CTU
  Company Number: None

PATIENT
  Age: 67 Year
  Sex: Female
  Weight: 53.55 kg

DRUGS (13)
  1. TRELEGY ELLIPTA [Suspect]
     Active Substance: FLUTICASONE FUROATE\UMECLIDINIUM BROMIDE\VILANTEROL TRIFENATATE
     Indication: Chronic obstructive pulmonary disease
     Dosage: OTHER QUANTITY : 30 PUFF(S)?FREQUENCY : DAILY?
     Route: 055
     Dates: start: 20250203, end: 20250502
  2. INCRUSE ELLIPTA [Concomitant]
     Active Substance: UMECLIDINIUM BROMIDE
  3. TRAZODONE [Concomitant]
     Active Substance: TRAZODONE HYDROCHLORIDE
  4. DULOXETINE [Concomitant]
     Active Substance: DULOXETINE
  5. GABAPENTIN [Concomitant]
     Active Substance: GABAPENTIN
  6. LIDOCAINE [Concomitant]
     Active Substance: LIDOCAINE
  7. FENTANYL TRANSDERMAL SYSTEM [Concomitant]
     Active Substance: FENTANYL
  8. hydrocodone/aceto [Concomitant]
  9. VITAMINS [Concomitant]
     Active Substance: VITAMINS
  10. VITAMIN C [Concomitant]
     Active Substance: ASCORBIC ACID
  11. TOCOPHEROL [Concomitant]
     Active Substance: TOCOPHEROL
  12. lysene [Concomitant]
  13. VITAMINS [Concomitant]
     Active Substance: VITAMINS

REACTIONS (14)
  - Urinary tract infection [None]
  - Micturition urgency [None]
  - Dysuria [None]
  - Urinary retention [None]
  - Urine flow decreased [None]
  - Back pain [None]
  - Flank pain [None]
  - Lymphadenopathy [None]
  - Blood pressure increased [None]
  - Pyrexia [None]
  - Myalgia [None]
  - Therapy cessation [None]
  - Blood urea decreased [None]
  - Blood lactate dehydrogenase increased [None]

NARRATIVE: CASE EVENT DATE: 20250429
